FAERS Safety Report 20132560 (Version 3)
Quarter: 2022Q2

REPORT INFORMATION
  Report Type: Spontaneous
  Country: FR (occurrence: FR)
  Receive Date: 20211130
  Receipt Date: 20220518
  Transmission Date: 20220721
  Serious: Yes (Other)
  Sender: FDA-Public Use
  Company Number: FR-GRUNENTHAL-2021-271969

PATIENT
  Sex: Female

DRUGS (4)
  1. QUTENZA [Suspect]
     Active Substance: CAPSAICIN
     Indication: Procedural pain
     Dosage: UNK
     Route: 065
     Dates: start: 20210113
  2. QUTENZA [Suspect]
     Active Substance: CAPSAICIN
     Dosage: UNK
     Route: 065
     Dates: start: 20210407
  3. QUTENZA [Suspect]
     Active Substance: CAPSAICIN
     Dosage: 1 DOSAGE FORM
     Route: 061
     Dates: start: 20210707
  4. TAMOXIFEN [Concomitant]
     Active Substance: TAMOXIFEN
     Indication: Invasive breast carcinoma
     Dosage: UNK
     Route: 065
     Dates: start: 202001, end: 202012

REACTIONS (3)
  - Application site burn [Recovered/Resolved with Sequelae]
  - Burns third degree [Unknown]
  - Burning sensation [Recovered/Resolved]

NARRATIVE: CASE EVENT DATE: 20210407
